FAERS Safety Report 6887301-2 (Version None)
Quarter: 2010Q3

REPORT INFORMATION
  Report Type: 
  Country: None (occurrence: None)
  Receive Date: 20100730
  Receipt Date: 20090612
  Transmission Date: 20110219
  Serious: No
  Sender: FDA-Public Use
  Company Number: A0791203A

PATIENT
  Age: 58 Year
  Sex: Female

DRUGS (5)
  1. IMITREX [Suspect]
     Indication: MIGRAINE
     Dosage: 100TAB AS REQUIRED
     Route: 048
     Dates: start: 19840101
  2. FIORINAL [Concomitant]
  3. DETROL [Concomitant]
  4. PRILOSEC [Concomitant]
  5. SINGULAIR [Concomitant]

REACTIONS (5)
  - CHEST DISCOMFORT [None]
  - DIZZINESS [None]
  - DYSPNOEA [None]
  - PAIN IN JAW [None]
  - PALPITATIONS [None]
